FAERS Safety Report 9116070 (Version 1)
Quarter: 2013Q1

REPORT INFORMATION
  Report Type: Spontaneous
  Country: JP (occurrence: JP)
  Receive Date: 20130225
  Receipt Date: 20130225
  Transmission Date: 20140127
  Serious: Yes (Death)
  Sender: FDA-Public Use
  Company Number: JP-PFIZER INC-2013067868

PATIENT
  Age: 60 Year
  Sex: Male

DRUGS (42)
  1. FOSPHENYTOIN SODIUM [Suspect]
     Indication: STATUS EPILEPTICUS
     Dosage: 22.5 MG/KG AT ADMINISTARTION RATE OF 150 MG/MIN IN 0.9% PHYSIOLOGICAL SALINE (DILUTION RATIO 1: 16)
     Dates: start: 20121227
  2. FOSPHENYTOIN SODIUM [Suspect]
     Dosage: 7.5 MG/KG/DAY AT ADMINISTRATION RATE OF 75 MG/MIN IN 0.9% PHYSIOLOGICAL SALINE (DILUTION RATIO 1:16)
     Dates: start: 20121228
  3. FOSPHENYTOIN SODIUM [Suspect]
     Dosage: 14 MG/KG/DAY AT ADMINISTRATION RATE OF 75 MG/MIN IN 0.9% PHYSIOLOGICAL SALINE (DILUTION RATIO 1: 16)
     Dates: start: 20121228
  4. FOSPHENYTOIN SODIUM [Suspect]
     Dosage: 7.5 MG/KG/DAY AT ADMINISTRATION RATE OF 75 MG/MIN IN 0.9% PHYSIOLOGICAL SALINE (DILUTION RATIO 1:16)
     Dates: start: 20121229
  5. FOSPHENYTOIN SODIUM [Suspect]
     Dosage: 7.5 MG/KG/DAY AT ADMINISTRATION RATE OF 75 MG/MIN IN 0.9% PHYSIOLOGICAL SALINE (DILUTION RATIO 1:16)
     Dates: start: 20121230
  6. FOSPHENYTOIN SODIUM [Suspect]
     Dosage: 7.5 MG/KG/DAY AT ADMINISTRATION RATE OF 75 MG/MIN IN 0.9% PHYSIOLOGICAL SALINE (DILUTION RATIO 1:16)
     Dates: start: 20121231
  7. FOSPHENYTOIN SODIUM [Suspect]
     Dosage: 7.5 MG/KG/DAY AT ADMINISTRATION RATE OF 75 MG/MIN IN 0.9% PHYSIOLOGICAL SALINE (DILUTION RATIO 1:16)
     Dates: start: 20130101
  8. FOSPHENYTOIN SODIUM [Suspect]
     Dosage: 7.5 MG/KG/DAY AT ADMINISTRATION RATE OF 75 MG/MIN IN 0.9% PHYSIOLOGICAL SALINE (DILUTION RATIO 1:16)
     Dates: start: 20130102
  9. FOSPHENYTOIN SODIUM [Suspect]
     Dosage: 7.5 MG/KG/DAY AT ADMINISTRATION RATE OF 75 MG/MIN IN 0.9% PHYSIOLOGICAL SALINE (DILUTION RATIO 1:16)
     Dates: start: 20130103
  10. FOSPHENYTOIN SODIUM [Suspect]
     Dosage: 7.5 MG/KG/DAY AT ADMINISTRATION RATE OF 75 MG/MIN IN 0.9% PHYSIOLOGICAL SALINE (DILUTION RATIO 1:16)
     Dates: start: 20130104
  11. FOSPHENYTOIN SODIUM [Suspect]
     Dosage: 7.5 MG/KG/DAY AT ADMINISTRATION RATE OF 75 MG/MIN IN 0.9% PHYSIOLOGICAL SALINE (DILUTION RATIO 1:16)
     Dates: start: 20130105
  12. FOSPHENYTOIN SODIUM [Suspect]
     Dosage: 7.5 MG/KG/DAY AT ADMINISTRATION RATE OF 75 MG/MIN IN 0.9% PHYSIOLOGICAL SALINE (DILUTION RATIO 1:16)
     Dates: start: 20130106
  13. FOSPHENYTOIN SODIUM [Suspect]
     Dosage: 7.5 MG/KG/DAY AT ADMINISTRATION RATE OF 75 MG/MIN IN 0.9% PHYSIOLOGICAL SALINE (DILUTION RATIO 1:16)
     Dates: start: 20130107
  14. FOSPHENYTOIN SODIUM [Suspect]
     Dosage: 7.5 MG/KG/DAY AT ADMINISTRATION RATE OF 75 MG/MIN IN 0.9% PHYSIOLOGICAL SALINE (DILUTION RATIO 1:16)
     Dates: start: 20130108
  15. FOSPHENYTOIN SODIUM [Suspect]
     Dosage: 7.5 MG/KG/DAY AT ADMINISTRATION RATE OF 75 MG/MIN IN 0.9% PHYSIOLOGICAL SALINE (DILUTION RATIO 1:16)
     Dates: start: 20130109
  16. FOSPHENYTOIN SODIUM [Suspect]
     Dosage: 7.5 MG/KG/DAY AT ADMINISTRATION RATE OF 75 MG/MIN IN 0.9% PHYSIOLOGICAL SALINE (DILUTION RATIO 1:16)
     Dates: start: 20130110
  17. FOSPHENYTOIN SODIUM [Suspect]
     Dosage: 7.5 MG/KG/DAY AT ADMINISTRATION RATE OF 75 MG/MIN IN 0.9% PHYSIOLOGICAL SALINE (DILUTION RATIO 1:16)
     Dates: start: 20130111
  18. FOSPHENYTOIN SODIUM [Suspect]
     Dosage: 7.5 MG/KG/DAY AT ADMINISTRATION RATE OF 75 MG/MIN IN 0.9% PHYSIOLOGICAL SALINE (DILUTION RATIO 1:16)
     Dates: start: 20130112
  19. FOSPHENYTOIN SODIUM [Suspect]
     Dosage: 7.5 MG/KG/DAY AT ADMINISTRATION RATE OF 75 MG/MIN IN 0.9% PHYSIOLOGICAL SALINE (DILUTION RATIO 1:16)
     Dates: start: 20130113
  20. FOSPHENYTOIN SODIUM [Suspect]
     Dosage: 7.5 MG/KG/DAY AT ADMINISTRATION RATE OF 75 MG/MIN IN 0.9% PHYSIOLOGICAL SALINE (DILUTION RATIO 1:16)
     Dates: start: 20130114
  21. FOSPHENYTOIN SODIUM [Suspect]
     Dosage: 7.5 MG/KG/DAY AT ADMINISTRATION RATE OF 75 MG/MIN IN 0.9% PHYSIOLOGICAL SALINE (DILUTION RATIO 1:16)
     Dates: start: 20130115
  22. FOSPHENYTOIN SODIUM [Suspect]
     Dosage: 7.5 MG/KG/DAY AT ADMINISTRATION RATE OF 75 MG/MIN IN 0.9% PHYSIOLOGICAL SALINE (DILUTION RATIO 1:16)
     Dates: start: 20130116
  23. FOSPHENYTOIN SODIUM [Suspect]
     Dosage: 7.5 MG/KG/DAY AT ADMINISTRATION RATE OF 75 MG/MIN IN 0.9% PHYSIOLOGICAL SALINE (DILUTION RATIO 1:16)
     Dates: start: 20130117
  24. FOSPHENYTOIN SODIUM [Suspect]
     Dosage: 7.5 MG/KG/DAY AT ADMINISTRATION RATE OF 75 MG/MIN IN 0.9% PHYSIOLOGICAL SALINE (DILUTION RATIO 1:16)
     Dates: start: 20130118
  25. BFLUID [Concomitant]
     Indication: FLUID REPLACEMENT
     Dosage: 500 ML, 2 VIALS
     Route: 042
     Dates: end: 20121228
  26. PRIMPERAN [Concomitant]
     Indication: NAUSEA
     Dosage: 10 MG 1A
     Route: 042
     Dates: end: 20121228
  27. GLYCEOL [Concomitant]
     Indication: OEDEMA
     Dosage: 200 ML 1 VIAL
     Route: 042
     Dates: end: 20121228
  28. GLYCEOL [Concomitant]
     Dosage: 200 ML 2 VIALS
     Route: 042
     Dates: start: 20121229, end: 20130118
  29. RINDERON [Concomitant]
     Indication: OEDEMA
     Dosage: 4 MG 2A
     Route: 042
     Dates: end: 20130118
  30. RINDERON [Concomitant]
     Dosage: 4MG 2A
     Route: 042
     Dates: start: 20121229, end: 20130118
  31. GASTER [Concomitant]
     Indication: PROPHYLAXIS AGAINST GASTROINTESTINAL ULCER
     Dosage: 20 MG 1A
     Route: 042
     Dates: end: 20121228
  32. GASTER [Concomitant]
     Dosage: UNK
     Route: 042
     Dates: start: 20121229, end: 20130118
  33. ELNEOPA NO.1 [Concomitant]
     Indication: FLUID REPLACEMENT
     Dosage: 1000 ML 1 VIAL
     Route: 042
     Dates: start: 20121229, end: 20130102
  34. FENTANYL [Concomitant]
     Indication: ANALGESIC THERAPY
     Dosage: 0.25 MG 1A
     Route: 042
     Dates: start: 20130102
  35. PANTOL [Concomitant]
     Indication: CONSTIPATION
     Dosage: 100 MG 1A
     Route: 042
     Dates: start: 20130102, end: 20130107
  36. ELNEOPA NO.2 [Concomitant]
     Indication: FLUID REPLACEMENT
     Dosage: 1000 ML 2 VIALS
     Route: 042
     Dates: start: 20130103, end: 20130119
  37. HUMULIN R [Concomitant]
     Indication: HYPERGLYCAEMIA
     Dosage: 8V, UNK
     Route: 042
     Dates: start: 20130103, end: 20130119
  38. KCL [Concomitant]
     Indication: ELECTROLYTE SUBSTITUTION THERAPY
     Dosage: 20MEQ 2 VIALS
     Route: 042
     Dates: start: 20130104, end: 20130119
  39. MANNITOL [Concomitant]
     Indication: BRAIN OEDEMA
     Dosage: 300 ML 0.66VIAL X2
     Route: 042
     Dates: start: 20130105, end: 20130118
  40. NOBELBAR [Concomitant]
     Indication: EPILEPSY
     Dosage: 1V
     Route: 042
     Dates: start: 20130104, end: 20130118
  41. ALEVIATIN [Concomitant]
     Indication: CONVULSION
     Dosage: 250 MG 1A
     Route: 042
     Dates: end: 20121227
  42. CERCINE [Concomitant]
     Indication: CONVULSION
     Dosage: 10 MG 1A
     Route: 042
     Dates: end: 20121227

REACTIONS (1)
  - Brain neoplasm [Fatal]
